FAERS Safety Report 4995050-0 (Version None)
Quarter: 2006Q2

REPORT INFORMATION
  Report Type: 
  Country: None (occurrence: None)
  Receive Date: 20060508
  Receipt Date: 20060426
  Transmission Date: 20061013
  Serious: Yes (Other)
  Sender: FDA-Public Use
  Company Number: FR-GLAXOSMITHKLINE-B0422690A

PATIENT
  Age: 78 Year
  Sex: Male

DRUGS (3)
  1. ADARTREL [Suspect]
     Indication: RESTLESS LEGS SYNDROME
     Dosage: 2MG PER DAY
     Route: 048
     Dates: start: 20060101
  2. FLODIL [Concomitant]
     Indication: HYPERTENSION
     Route: 048
  3. DIURETIC [Concomitant]
     Indication: HYPERTENSION
     Route: 048

REACTIONS (3)
  - DISTURBANCE IN ATTENTION [None]
  - LOSS OF CONSCIOUSNESS [None]
  - RESTLESS LEGS SYNDROME [None]
